FAERS Safety Report 9452353 (Version 3)
Quarter: 2013Q3

REPORT INFORMATION
  Report Type: Spontaneous
  Country: FR (occurrence: FR)
  Receive Date: 20130812
  Receipt Date: 20130830
  Transmission Date: 20140515
  Serious: No
  Sender: FDA-Public Use
  Company Number: FR-JNJFOC-20130717909

PATIENT
  Age: 60 Year
  Sex: Male

DRUGS (1)
  1. DUROGESIC [Suspect]
     Indication: PAIN
     Route: 062

REACTIONS (5)
  - Product quality issue [Unknown]
  - Wrong technique in drug usage process [Unknown]
  - Pain [Unknown]
  - Underdose [Unknown]
  - Withdrawal syndrome [Unknown]
